FAERS Safety Report 7563602-X (Version None)
Quarter: 2011Q2

REPORT INFORMATION
  Report Type: 
  Country: None (occurrence: None)
  Receive Date: 20110621
  Receipt Date: 20110621
  Transmission Date: 20111010
  Serious: No
  Sender: FDA-Public Use
  Company Number: None

PATIENT

DRUGS (1)
  1. RISPERIDONE [Suspect]
     Indication: SCHIZOPHRENIA
     Dosage: 37.5 MG EVERY 2 WEEKS
     Dates: start: 20110404, end: 20110510

REACTIONS (7)
  - DYSPHAGIA [None]
  - MUSCULOSKELETAL DISORDER [None]
  - ARTHRALGIA [None]
  - BONE PAIN [None]
  - DROOLING [None]
  - ANGINA PECTORIS [None]
  - VISUAL ACUITY REDUCED [None]
